FAERS Safety Report 16571719 (Version 4)
Quarter: 2020Q2

REPORT INFORMATION
  Report Type: Spontaneous
  Country: US (occurrence: US)
  Receive Date: 20190715
  Receipt Date: 20200529
  Transmission Date: 20200713
  Serious: No
  Sender: FDA-Public Use
  Company Number: US-PFIZER INC-2019096133

PATIENT
  Age: 43 Year
  Sex: Female
  Weight: 115.47 kg

DRUGS (5)
  1. VENLAFAXINE HCL [Suspect]
     Active Substance: VENLAFAXINE HYDROCHLORIDE
     Indication: DEPRESSION
     Dosage: 150 MG, 1X/DAY
     Route: 048
  2. VENLAFAXINE HCL [Suspect]
     Active Substance: VENLAFAXINE HYDROCHLORIDE
     Indication: PANIC ATTACK
  3. BUPROPION. [Suspect]
     Active Substance: BUPROPION
     Dosage: UNK
  4. VENLAFAXINE HCL [Suspect]
     Active Substance: VENLAFAXINE HYDROCHLORIDE
     Indication: ANXIETY
  5. VENLAFAXINE HCL [Suspect]
     Active Substance: VENLAFAXINE HYDROCHLORIDE
     Indication: SUICIDAL BEHAVIOUR

REACTIONS (17)
  - Arthralgia [Not Recovered/Not Resolved]
  - Withdrawal syndrome [Unknown]
  - Influenza like illness [Unknown]
  - Panic attack [Unknown]
  - Nightmare [Recovered/Resolved]
  - Fatigue [Unknown]
  - Drug intolerance [Unknown]
  - Drug ineffective [Unknown]
  - Muscle rigidity [Not Recovered/Not Resolved]
  - Condition aggravated [Unknown]
  - Post-traumatic stress disorder [Unknown]
  - Hypoaesthesia [Not Recovered/Not Resolved]
  - Palpitations [Unknown]
  - Anxiety [Unknown]
  - Emotional disorder [Unknown]
  - Nausea [Unknown]
  - Pyrexia [Not Recovered/Not Resolved]

NARRATIVE: CASE EVENT DATE: 201805
